FAERS Safety Report 9561399 (Version 2)
Quarter: 2013Q4

REPORT INFORMATION
  Report Type: Spontaneous
  Country: US (occurrence: US)
  Receive Date: 20130927
  Receipt Date: 20131115
  Transmission Date: 20140711
  Serious: No
  Sender: FDA-Public Use
  Company Number: US-BIOGENIDEC-2013BI058832

PATIENT
  Age: 49 Year
  Sex: Female

DRUGS (6)
  1. TECFIDERA [Suspect]
     Indication: MULTIPLE SCLEROSIS
     Route: 048
     Dates: start: 20130520
  2. VESICARE [Concomitant]
  3. AMBIEN [Concomitant]
  4. AMANTADINE HCL [Concomitant]
  5. IMIPRAMINE [Concomitant]
  6. NITROFURANTOIN MACROCRYSTAL [Concomitant]

REACTIONS (1)
  - Constipation [Unknown]
